FAERS Safety Report 19375997 (Version 1)
Quarter: 2021Q2

REPORT INFORMATION
  Report Type: Spontaneous
  Country: US (occurrence: US)
  Receive Date: 20210604
  Receipt Date: 20210604
  Transmission Date: 20210717
  Serious: Yes (Other)
  Sender: FDA-Public Use
  Company Number: US-HIKMA PHARMACEUTICALS USA INC.-US-H14001-21-02608

PATIENT
  Sex: Female

DRUGS (5)
  1. TACROLIMUS. [Suspect]
     Active Substance: TACROLIMUS
     Dosage: 10?12 NG/ML
     Route: 065
  2. TACROLIMUS. [Suspect]
     Active Substance: TACROLIMUS
     Indication: IMMUNOSUPPRESSION
     Dosage: 8?10 NG/ML
     Route: 065
  3. MYCOPHENOLATE MOFETIL. [Suspect]
     Active Substance: MYCOPHENOLATE MOFETIL
     Indication: IMMUNOSUPPRESSION
     Route: 065
  4. MYCOPHENOLATE MOFETIL. [Suspect]
     Active Substance: MYCOPHENOLATE MOFETIL
     Route: 065
  5. ANTI?THYMOCYTE GLOBULIN [Suspect]
     Active Substance: THYMOCYTE IMMUNE GLOBULIN NOS
     Indication: IMMUNOSUPPRESSION
     Dosage: UNKNOWN
     Route: 065

REACTIONS (5)
  - Epilepsy [Unknown]
  - Transplant rejection [Unknown]
  - COVID-19 [Recovered/Resolved]
  - Kidney transplant rejection [Unknown]
  - Attention deficit hyperactivity disorder [Unknown]
